FAERS Safety Report 10098907 (Version 10)
Quarter: 2015Q4

REPORT INFORMATION
  Report Type: Spontaneous
  Country: CA (occurrence: CA)
  Receive Date: 20140423
  Receipt Date: 20151116
  Transmission Date: 20160304
  Serious: Yes (Death, Hospitalization, Other)
  Sender: FDA-Public Use
  Company Number: CA-B.I. PHARMACEUTICALS,INC./RIDGEFIELD-2014-BI-18010CN

PATIENT
  Age: 95 Year
  Sex: Female

DRUGS (9)
  1. HYDROCHLOROTHIAZIDE. [Concomitant]
     Active Substance: HYDROCHLOROTHIAZIDE
     Dosage: 25 MG
     Route: 065
  2. LANSOPRAZOLE. [Concomitant]
     Active Substance: LANSOPRAZOLE
     Dosage: 30 MG
     Route: 065
  3. FERROUS GLUCONATE [Concomitant]
     Active Substance: FERROUS GLUCONATE
     Dosage: 900 MG
     Route: 065
  4. PRADAXA [Suspect]
     Active Substance: DABIGATRAN ETEXILATE MESYLATE
     Indication: CEREBROVASCULAR ACCIDENT PROPHYLAXIS
     Dosage: 220 MG
     Route: 065
     Dates: end: 20140606
  5. METFORMIN [Concomitant]
     Active Substance: METFORMIN HYDROCHLORIDE
     Indication: DIABETES MELLITUS
     Dosage: 1500 MG
     Route: 065
  6. APO-TRAZODONE [Concomitant]
     Active Substance: TRAZODONE HYDROCHLORIDE
     Dosage: 25 MG
     Route: 065
  7. PRADAXA [Suspect]
     Active Substance: DABIGATRAN ETEXILATE MESYLATE
     Indication: ATRIAL FIBRILLATION
  8. ALTACE [Concomitant]
     Active Substance: RAMIPRIL
     Dosage: 10 MG
     Route: 065
  9. BISOPROLOL FUMARATE. [Concomitant]
     Active Substance: BISOPROLOL FUMARATE
     Dosage: 5 MG
     Route: 065

REACTIONS (18)
  - Fall [Unknown]
  - Blood pressure decreased [Unknown]
  - Lethargy [Unknown]
  - Asthenia [Unknown]
  - Haemoglobin decreased [Recovered/Resolved]
  - Cheyne-Stokes respiration [Unknown]
  - Fatigue [Unknown]
  - Haemoglobin decreased [Unknown]
  - Haemoglobin decreased [Recovered/Resolved]
  - Pyrexia [Recovered/Resolved]
  - Gastrointestinal haemorrhage [Unknown]
  - Rectal haemorrhage [Recovered/Resolved]
  - Pallor [Unknown]
  - Dysphagia [Not Recovered/Not Resolved]
  - Myocardial infarction [Unknown]
  - Haemoglobin decreased [Unknown]
  - Cardiac failure [Fatal]
  - Haematochezia [Unknown]

NARRATIVE: CASE EVENT DATE: 201403
